FAERS Safety Report 18708765 (Version 1)
Quarter: 2021Q1

REPORT INFORMATION
  Report Type: Spontaneous
  Country: CN (occurrence: CN)
  Receive Date: 20210106
  Receipt Date: 20210106
  Transmission Date: 20210419
  Serious: Yes (Other)
  Sender: FDA-Public Use
  Company Number: CN-ROCHE-2744104

PATIENT
  Age: 59 Year
  Sex: Female

DRUGS (1)
  1. ALECENSA [Suspect]
     Active Substance: ALECTINIB HYDROCHLORIDE
     Indication: LUNG ADENOCARCINOMA
     Route: 048
     Dates: start: 20200402

REACTIONS (6)
  - Asthenia [Recovering/Resolving]
  - Blood thyroid stimulating hormone increased [Unknown]
  - Electrocardiogram QT prolonged [Recovering/Resolving]
  - Hypothyroidism [Unknown]
  - Oedema peripheral [Recovering/Resolving]
  - Sinus bradycardia [Recovering/Resolving]
